FAERS Safety Report 11982063 (Version 1)
Quarter: 2016Q1

REPORT INFORMATION
  Report Type: Spontaneous
  Country: US (occurrence: None)
  Receive Date: 20160129
  Receipt Date: 20160129
  Transmission Date: 20160526
  Serious: Yes (Other)
  Sender: FDA-Public Use
  Company Number: None

PATIENT
  Age: 42 Year
  Sex: Female

DRUGS (1)
  1. COPAXONE [Suspect]
     Active Substance: GLATIRAMER ACETATE
     Dosage: DOSE FORM: INJECTABLE
     Route: 058

REACTIONS (4)
  - Injection site reaction [None]
  - Injection site swelling [None]
  - Injection site mass [None]
  - Injection site pruritus [None]

NARRATIVE: CASE EVENT DATE: 20160127
